FAERS Safety Report 8465199-9 (Version None)
Quarter: 2012Q2

REPORT INFORMATION
  Report Type: 
  Country: None (occurrence: None)
  Receive Date: 20120626
  Receipt Date: 20120619
  Transmission Date: 20120825
  Serious: Yes (Other)
  Sender: FDA-Public Use
  Company Number: PHEH2012US012264

PATIENT
  Sex: Female
  Weight: 78.4 kg

DRUGS (15)
  1. CHLORTHALIDONE [Concomitant]
     Dosage: 1 DF, QD
  2. CHONDROITIN SULFATE [Concomitant]
     Dosage: 1200 MG, QD
  3. POTASSIUM CHLORIDE [Concomitant]
     Dosage: 20 MEQ, BID
  4. MULTI-VITAMINS [Concomitant]
  5. GLUCOSAMINE [Concomitant]
     Dosage: 1500 MG, 2 TABLETS ONCE A DAY
  6. PANTOPRAZOLE SODIUM [Concomitant]
     Dosage: 1 DF, UNK
  7. SYNTHROID [Concomitant]
     Dosage: EVERY MORNING ON EMPTY STOMACH
  8. CALCIUM [Concomitant]
     Dosage: 500 MG, QD
  9. VITAMIN D [Concomitant]
     Dosage: 2 DF, QD
  10. FLAXSEED OIL [Concomitant]
     Dosage: 1 DF, QD
  11. CALCIUM WITH VITAMIN D [Concomitant]
     Dosage: 1 DF, QD
  12. HYDROCHLOROTHIAZIDE [Concomitant]
     Dosage: UNK UKN, UNK
  13. MINERALS NOS [Concomitant]
     Dosage: 1 DF, UNK
  14. RECLAST [Suspect]
     Indication: OSTEOPOROSIS
     Dosage: UNK UKN, UNK
     Route: 042
     Dates: start: 20120201
  15. FISH OIL [Concomitant]
     Dosage: 1000 MG, QD

REACTIONS (3)
  - THYROID NEOPLASM [None]
  - GOITRE [None]
  - HYPOKALAEMIA [None]
